FAERS Safety Report 24193594 (Version 1)
Quarter: 2024Q3

REPORT INFORMATION
  Report Type: Spontaneous
  Country: DE (occurrence: DE)
  Receive Date: 20240809
  Receipt Date: 20240809
  Transmission Date: 20241017
  Serious: Yes (Other)
  Sender: RANBAXY
  Company Number: DE-SUN PHARMACEUTICAL INDUSTRIES LTD-2024RR-461425

PATIENT
  Sex: Male
  Weight: 87 kg

DRUGS (4)
  1. EZETIMIBE [Suspect]
     Active Substance: EZETIMIBE
     Indication: Hyperlipidaemia
     Dosage: 1X1
     Route: 048
     Dates: start: 202207, end: 202308
  2. SIMVASTATIN [Suspect]
     Active Substance: SIMVASTATIN
     Indication: Hyperlipidaemia
     Dosage: 1X1
     Route: 048
     Dates: start: 2004, end: 202107
  3. ROSUVASTATIN [Suspect]
     Active Substance: ROSUVASTATIN\ROSUVASTATIN CALCIUM
     Indication: Hyperlipidaemia
     Dosage: 1X1
     Route: 048
     Dates: start: 202107, end: 202304
  4. BEMPEDOIC ACID [Suspect]
     Active Substance: BEMPEDOIC ACID
     Indication: Hyperlipidaemia
     Dosage: 180 MILLIGRAM, DAILY
     Route: 048
     Dates: start: 202304, end: 202308

REACTIONS (2)
  - Hepatotoxicity [Recovered/Resolved]
  - Drug effect less than expected [Unknown]
